FAERS Safety Report 24742840 (Version 4)
Quarter: 2025Q1

REPORT INFORMATION
  Report Type: Spontaneous
  Country: US (occurrence: US)
  Receive Date: 20241217
  Receipt Date: 20250114
  Transmission Date: 20250409
  Serious: Yes (Other)
  Sender: PFIZER
  Company Number: US-PFIZER INC-202400323733

PATIENT
  Age: 70 Year
  Sex: Female

DRUGS (1)
  1. IBRANCE [Suspect]
     Active Substance: PALBOCICLIB
     Route: 048
     Dates: start: 20241207, end: 20241211

REACTIONS (8)
  - Chest discomfort [Unknown]
  - Cough [Recovering/Resolving]
  - Hot flush [Unknown]
  - Quality of life decreased [Not Recovered/Not Resolved]
  - Dyspnoea [Unknown]
  - Fatigue [Not Recovered/Not Resolved]
  - Malaise [Unknown]
  - Diarrhoea [Unknown]

NARRATIVE: CASE EVENT DATE: 20241201
